FAERS Safety Report 5562350-5 (Version None)
Quarter: 2007Q4

REPORT INFORMATION
  Report Type: 
  Country: None (occurrence: None)
  Receive Date: 20071215
  Receipt Date: 20070726
  Transmission Date: 20080405
  Serious: No
  Sender: FDA-Public Use
  Company Number: US-AMGEN-US235921

PATIENT
  Sex: Female
  Weight: 67.6 kg

DRUGS (7)
  1. ARANESP [Suspect]
     Indication: RENAL FAILURE CHRONIC
     Route: 058
     Dates: start: 20070622
  2. PROCRIT [Suspect]
     Indication: RENAL FAILURE CHRONIC
  3. DEPO-MEDROL [Concomitant]
     Dates: end: 20070702
  4. ALPHAGAN [Concomitant]
  5. ZESTRIL [Concomitant]
  6. POTASSIUM CHLORIDE [Concomitant]
  7. KENALOG [Concomitant]

REACTIONS (16)
  - CHEST PAIN [None]
  - DECREASED APPETITE [None]
  - DYSGEUSIA [None]
  - DYSPEPSIA [None]
  - DYSPNOEA [None]
  - ENERGY INCREASED [None]
  - FATIGUE [None]
  - GLOSSITIS [None]
  - HEADACHE [None]
  - INSOMNIA [None]
  - NAUSEA [None]
  - PAIN [None]
  - PAIN IN EXTREMITY [None]
  - POLLAKIURIA [None]
  - STOMACH DISCOMFORT [None]
  - WEIGHT DECREASED [None]
